FAERS Safety Report 10211470 (Version 1)
Quarter: 2014Q2

REPORT INFORMATION
  Report Type: Spontaneous
  Country: FR (occurrence: None)
  Receive Date: 20140528
  Receipt Date: 20140528
  Transmission Date: 20141212
  Serious: Yes (Hospitalization)
  Sender: FDA-Public Use
  Company Number: 7293929

PATIENT
  Age: 87 Year
  Sex: Male

DRUGS (12)
  1. PREVISCAN (FLUINDIONE) [Suspect]
     Indication: ATRIAL FIBRILLATION
     Route: 048
     Dates: end: 20140207
  2. LEVOTHYROX (LEVOTHYROXINE SODIUM) [Suspect]
     Indication: HYPOTHYROIDISM
     Route: 048
  3. CRESTOR /01588601/ [Suspect]
     Indication: DYSLIPIDAEMIA
     Dosage: 1 DF (1 IN 1 D), ORAL LONG TERM
     Route: 048
  4. KARDEGIC /00002703/ [Suspect]
     Indication: MYOCARDIAL ISCHAEMIA
     Dosage: 1 DF ( 1 DF, 1 IN 1 D), ORAL, LONG TERM?
     Route: 048
     Dates: end: 20140214
  5. IKOREL (NICORANDILL) [Concomitant]
  6. TRIATEC /00885601/ (RAMIPRIL) [Concomitant]
  7. FUROSEMIDE (FUROSEMIDE) (FUROSEMIDE) [Concomitant]
  8. CARDENSIEL (BISOPROLOL FUMARATE) (BISOPROLOL FUMARATE) [Concomitant]
  9. RAMIPRIL (RAMIPRIL) (RAMIPRIL) [Concomitant]
  10. NITRIDERM (GLYCERYL TRINITRATE) (GLYCERYL TRINITRATE) [Concomitant]
  11. IMOVANE (ZOPICLONE) (ZOPICLONE) [Concomitant]
  12. LEXOMIL (BROMAZEPAM) (BROMAZEPAM) [Concomitant]

REACTIONS (2)
  - Anaemia [None]
  - Drug interaction [None]
